FAERS Safety Report 9281153 (Version 1)
Quarter: 2013Q2

REPORT INFORMATION
  Report Type: Spontaneous
  Country: US (occurrence: US)
  Receive Date: 20130509
  Receipt Date: 20130509
  Transmission Date: 20140414
  Serious: Yes (Hospitalization)
  Sender: FDA-Public Use
  Company Number: US-BAYER-2013-057739

PATIENT
  Age: 26 Year
  Sex: Female
  Weight: 76.96 kg

DRUGS (4)
  1. YAZ [Suspect]
  2. YASMIN [Suspect]
     Indication: CONTRACEPTION
  3. OCELLA [Suspect]
  4. CEFALEXIN MONOHYDRATE [Concomitant]

REACTIONS (1)
  - Deep vein thrombosis [None]
